FAERS Safety Report 15159792 (Version 1)
Quarter: 2018Q3

REPORT INFORMATION
  Report Type: Spontaneous
  Country: US (occurrence: US)
  Receive Date: 20180620
  Receipt Date: 20180620
  Transmission Date: 20181010
  Serious: Yes (Life-Threatening)
  Sender: FDA-Public Use
  Company Number: None

PATIENT
  Age: 48 Year
  Sex: Female
  Weight: 72 kg

DRUGS (12)
  1. SMZ/TMP DS [Suspect]
     Active Substance: SULFAMETHOXAZOLE\TRIMETHOPRIM
     Indication: LOCALISED INFECTION
     Dosage: ?          QUANTITY:1 TABLET(S);?
     Route: 048
     Dates: start: 20180329, end: 20180405
  2. GABAPENTIN. [Concomitant]
     Active Substance: GABAPENTIN
  3. COD LIVER OIL [Concomitant]
     Active Substance: COD LIVER OIL
  4. COQ10 WITH VITAMIN E [Concomitant]
  5. BENADRYL [Concomitant]
     Active Substance: DIPHENHYDRAMINE HYDROCHLORIDE
  6. ZANTAC [Concomitant]
     Active Substance: RANITIDINE HYDROCHLORIDE
  7. HYDROCORTISONE. [Concomitant]
     Active Substance: HYDROCORTISONE
  8. VITAMIN B12 [Concomitant]
     Active Substance: CYANOCOBALAMIN
  9. TYLENOL [Concomitant]
     Active Substance: ACETAMINOPHEN
  10. MELOXICAM. [Concomitant]
     Active Substance: MELOXICAM
  11. BACLOFEN. [Concomitant]
     Active Substance: BACLOFEN
  12. ALLEGRA [Concomitant]
     Active Substance: FEXOFENADINE HYDROCHLORIDE

REACTIONS (12)
  - Rosacea [None]
  - Tongue blistering [None]
  - Blister [None]
  - Rash pruritic [None]
  - Swelling face [None]
  - Throat tightness [None]
  - Eye swelling [None]
  - Acne [None]
  - Oral mucosal blistering [None]
  - Burning sensation [None]
  - Feeling hot [None]
  - Skin erosion [None]

NARRATIVE: CASE EVENT DATE: 20180402
